FAERS Safety Report 20667539 (Version 1)
Quarter: 2022Q2

REPORT INFORMATION
  Report Type: Report from Study
  Country: CA (occurrence: CA)
  Receive Date: 20220404
  Receipt Date: 20220404
  Transmission Date: 20220721
  Serious: Yes (Other)
  Sender: FDA-Public Use
  Company Number: CA-ABBVIE-22K-028-4338559-00

PATIENT
  Sex: Female

DRUGS (1)
  1. RINVOQ [Suspect]
     Active Substance: UPADACITINIB
     Indication: Rheumatoid arthritis
     Route: 048
     Dates: start: 20210731

REACTIONS (6)
  - Joint injury [Unknown]
  - Arthropathy [Not Recovered/Not Resolved]
  - Joint range of motion decreased [Unknown]
  - Fall [Unknown]
  - Walking aid user [Unknown]
  - Drug ineffective [Unknown]
